FAERS Safety Report 23184553 (Version 1)
Quarter: 2023Q4

REPORT INFORMATION
  Report Type: Spontaneous
  Country: CN (occurrence: CN)
  Receive Date: 20231115
  Receipt Date: 20231115
  Transmission Date: 20240110
  Serious: Yes (Other)
  Sender: FDA-Public Use
  Company Number: CN-002147023-NVSC2023CN240365

PATIENT
  Sex: Male

DRUGS (2)
  1. LUCENTIS [Suspect]
     Active Substance: RANIBIZUMAB
     Indication: Vascular occlusion
     Route: 065
     Dates: start: 202304
  2. LUCENTIS [Suspect]
     Active Substance: RANIBIZUMAB
     Indication: Eye oedema
     Route: 065
     Dates: start: 202310

REACTIONS (3)
  - Retinal vascular disorder [Unknown]
  - Blindness [Unknown]
  - Eye oedema [Unknown]

NARRATIVE: CASE EVENT DATE: 20231001
